FAERS Safety Report 9251045 (Version 1)
Quarter: 2013Q1

REPORT INFORMATION
  Report Type: Spontaneous
  Country: US (occurrence: None)
  Receive Date: 20130305
  Receipt Date: 20130305
  Transmission Date: 20140127
  Serious: Yes (Other)
  Sender: FDA-Public Use
  Company Number: 163-21880-12042246

PATIENT
  Sex: 0

DRUGS (1)
  1. REVLIMID (LENALIDOMIDE) [Suspect]
     Indication: NON-HODGKIN^S LYMPHOMA

REACTIONS (2)
  - Bone marrow failure [None]
  - Asthenia [None]
